FAERS Safety Report 5034246-9 (Version None)
Quarter: 2006Q2

REPORT INFORMATION
  Report Type: 
  Country: None (occurrence: None)
  Receive Date: 20060621
  Receipt Date: 20060610
  Transmission Date: 20061013
  Serious: Yes (Other)
  Sender: FDA-Public Use
  Company Number: 2006074308

PATIENT
  Age: 44 Year
  Sex: Male
  Weight: 88.4514 kg

DRUGS (4)
  1. BENADRYL [Suspect]
     Indication: NASAL CONGESTION
     Dosage: 4 TABLETS NIGHTLY, ORAL
     Route: 048
     Dates: start: 20060401, end: 20060608
  2. ZOLPIDEM TARTRATE [Concomitant]
  3. EMCITRICITABINE/TENOFAVIR DISOPROXIL FUMARATE (EMTRICITABINE, TENOFOVI [Concomitant]
  4. RITONAVIR (RITONAVIR) [Concomitant]

REACTIONS (3)
  - BACK PAIN [None]
  - BLOOD URINE PRESENT [None]
  - NEPHROLITHIASIS [None]
